FAERS Safety Report 23449843 (Version 1)
Quarter: 2024Q1

REPORT INFORMATION
  Report Type: Spontaneous
  Country: US (occurrence: US)
  Receive Date: 20240129
  Receipt Date: 20240129
  Transmission Date: 20240410
  Serious: No
  Sender: FDA-Public Use
  Company Number: US-THERACOSBIO, LLC-THR-US-2023-000001

PATIENT

DRUGS (1)
  1. BRENZAVVY [Suspect]
     Active Substance: BEXAGLIFLOZIN
     Indication: Product used for unknown indication
     Route: 065

REACTIONS (3)
  - Alopecia [Unknown]
  - Fatigue [Unknown]
  - Gastrointestinal disorder [Unknown]
